FAERS Safety Report 9253134 (Version 1)
Quarter: 2013Q2

REPORT INFORMATION
  Report Type: Spontaneous
  Country: JP (occurrence: JP)
  Receive Date: 20130424
  Receipt Date: 20130424
  Transmission Date: 20140414
  Serious: Yes (Other)
  Sender: FDA-Public Use
  Company Number: PHHY2013JP037990

PATIENT
  Age: 57 Year
  Sex: Male

DRUGS (9)
  1. TEGRETOL [Suspect]
     Indication: EPILEPSY
     Dosage: 100 MG, DAILY
     Route: 048
     Dates: start: 20130313
  2. PURSENNID [Suspect]
     Dosage: UNK UKN, UNK
     Route: 048
  3. BENZALIN [Concomitant]
  4. PYRETHIA//PROMETHAZINE HYDROCHLORIDE [Concomitant]
  5. EURODIN [Concomitant]
  6. ZYPREXA [Concomitant]
  7. RIVOTRIL [Concomitant]
  8. DEPAKENE [Concomitant]
  9. SODIUM VALPROATE [Concomitant]

REACTIONS (6)
  - Stevens-Johnson syndrome [Unknown]
  - Drug eruption [Unknown]
  - Generalised erythema [Unknown]
  - Skin erosion [Unknown]
  - Lip swelling [Unknown]
  - Rash [Unknown]
